FAERS Safety Report 12854830 (Version 1)
Quarter: 2016Q4

REPORT INFORMATION
  Report Type: Spontaneous
  Country: US (occurrence: US)
  Receive Date: 20161017
  Receipt Date: 20161017
  Transmission Date: 20170207
  Serious: Yes (Other)
  Sender: FDA-Public Use
  Company Number: US-BELCHER PHARMACEUTICALS, LLC-2016VTS00168

PATIENT
  Age: 64 Year
  Sex: Male
  Weight: 99.77 kg

DRUGS (4)
  1. HYOSCYAMINE SULFATE. [Suspect]
     Active Substance: HYOSCYAMINE SULFATE
     Indication: DIVERTICULITIS
     Dosage: UNK
     Route: 048
     Dates: end: 20160714
  2. FISH OIL [Concomitant]
     Active Substance: FISH OIL
  3. HYOSCYAMINE SULFATE. [Suspect]
     Active Substance: HYOSCYAMINE SULFATE
     Indication: DIVERTICULUM
  4. UNSPECIFIED VITAMINS [Concomitant]
     Active Substance: VITAMINS

REACTIONS (3)
  - Abdominal pain [Recovering/Resolving]
  - Back pain [Recovering/Resolving]
  - Abdominal pain upper [None]

NARRATIVE: CASE EVENT DATE: 201607
